FAERS Safety Report 8348195-1 (Version None)
Quarter: 2012Q2

REPORT INFORMATION
  Report Type: 
  Country: None (occurrence: None)
  Receive Date: 20120509
  Receipt Date: 20100701
  Transmission Date: 20120825
  Serious: No
  Sender: FDA-Public Use
  Company Number: US-TEVA-2010003663

PATIENT
  Sex: Female
  Weight: 77.18 kg

DRUGS (10)
  1. OXYCODONE HCL AND ACETAMINOPHEN [Concomitant]
     Indication: RHEUMATOID ARTHRITIS
     Dates: start: 20060101
  2. ACCUPRIL [Concomitant]
     Indication: BLOOD PRESSURE
     Dates: start: 19800101
  3. CARVEDILOL [Concomitant]
     Dates: start: 19950101
  4. PEXEVA [Concomitant]
     Indication: DEPRESSION
     Dates: start: 19900101
  5. MAXZIDE [Concomitant]
     Dates: start: 19800101
  6. ALBUTEROL [Concomitant]
     Indication: ASTHMA
     Dates: start: 20060101
  7. WELLBUTRIN [Concomitant]
     Indication: DEPRESSION
  8. NUVIGIL [Suspect]
     Indication: FATIGUE
     Dosage: 150 MILLIGRAM;
     Route: 048
     Dates: start: 20100601, end: 20100630
  9. SPIRIVA [Concomitant]
     Indication: EMPHYSEMA
     Dates: start: 20060101
  10. SYNTHROID [Concomitant]
     Indication: THYROID DISORDER
     Dates: start: 19700101

REACTIONS (3)
  - NECK PAIN [None]
  - DRUG INEFFECTIVE FOR UNAPPROVED INDICATION [None]
  - HEADACHE [None]
